FAERS Safety Report 4661590-7 (Version None)
Quarter: 2005Q2

REPORT INFORMATION
  Report Type: 
  Country: None (occurrence: None)
  Receive Date: 20050513
  Receipt Date: 20050210
  Transmission Date: 20051028
  Serious: Yes (Hospitalization)
  Sender: FDA-Public Use
  Company Number: US-MERCK-0502USA01604

PATIENT
  Age: 67 Year
  Sex: Female
  Weight: 100 kg

DRUGS (7)
  1. VIOXX [Suspect]
     Indication: OSTEOARTHRITIS
     Route: 048
     Dates: start: 20000101, end: 20030101
  2. VIOXX [Suspect]
     Route: 048
     Dates: start: 20000101, end: 20030101
  3. VIOXX [Concomitant]
     Indication: ANALGESIC EFFECT
     Route: 048
     Dates: start: 20000101
  4. NORVASC [Concomitant]
     Route: 065
  5. DIOVAN [Concomitant]
     Route: 065
  6. SYNTHROID [Concomitant]
     Route: 065
  7. LOPRESSOR [Concomitant]
     Route: 065

REACTIONS (7)
  - ADVERSE EVENT [None]
  - AORTIC ATHEROSCLEROSIS [None]
  - CARDIOVASCULAR DISORDER [None]
  - CEREBROVASCULAR ACCIDENT [None]
  - EMOTIONAL DISTRESS [None]
  - MULTI-ORGAN DISORDER [None]
  - PAIN [None]
